FAERS Safety Report 6958541-9 (Version None)
Quarter: 2010Q3

REPORT INFORMATION
  Report Type: 
  Country: None (occurrence: None)
  Receive Date: 20100830
  Receipt Date: 20100830
  Transmission Date: 20110219
  Serious: Yes (Other)
  Sender: FDA-Public Use
  Company Number: None

PATIENT
  Age: 75 Year
  Sex: Female
  Weight: 63.5036 kg

DRUGS (1)
  1. CIPROFLOXACIN HCL [Suspect]
     Indication: BLOOD URINE PRESENT
     Dosage: 2X DAILY PO
     Dates: start: 20100825, end: 20100827

REACTIONS (7)
  - ABASIA [None]
  - ARTHRITIS [None]
  - ASTHENIA [None]
  - CONDITION AGGRAVATED [None]
  - NAUSEA [None]
  - PAIN IN EXTREMITY [None]
  - THINKING ABNORMAL [None]
